FAERS Safety Report 10393462 (Version 1)
Quarter: 2014Q3

REPORT INFORMATION
  Report Type: Spontaneous
  Country: CA (occurrence: CA)
  Receive Date: 20140819
  Receipt Date: 20140819
  Transmission Date: 20150326
  Serious: Yes (Life-Threatening, Hospitalization)
  Sender: FDA-Public Use
  Company Number: CA-GLAXOSMITHKLINE-A1085418A

PATIENT
  Age: 46 Year
  Sex: Female
  Weight: 70 kg

DRUGS (10)
  1. CARBOCAL [Concomitant]
     Active Substance: CALCIUM CARBONATE
  2. STEMETIL [Concomitant]
     Active Substance: PROCHLORPERAZINE MALEATE
  3. VALTREX [Suspect]
     Active Substance: VALACYCLOVIR HYDROCHLORIDE
     Indication: PRODUCT USED FOR UNKNOWN INDICATION
     Dosage: 1000MG TWICE PER DAY
     Route: 048
  4. IMOVANE [Concomitant]
     Active Substance: ZOPICLONE
  5. COLACE [Concomitant]
     Active Substance: DOCUSATE SODIUM
  6. CREON [Concomitant]
     Active Substance: PANCRELIPASE AMYLASE\PANCRELIPASE LIPASE\PANCRELIPASE PROTEASE
  7. POLYETHYLENE GLYCOL [Concomitant]
     Active Substance: POLYETHYLENE GLYCOLS
  8. DOMPERIDONE [Concomitant]
     Active Substance: DOMPERIDONE
  9. GEMZAR [Suspect]
     Active Substance: GEMCITABINE HYDROCHLORIDE
     Indication: PRODUCT USED FOR UNKNOWN INDICATION
     Dosage: 1000MGM2 CYCLIC
     Route: 065
  10. PANTOLOC [Concomitant]
     Active Substance: PANTOPRAZOLE SODIUM

REACTIONS (1)
  - Thrombotic thrombocytopenic purpura [Recovered/Resolved]
